FAERS Safety Report 16539955 (Version 1)
Quarter: 2019Q3

REPORT INFORMATION
  Report Type: Spontaneous
  Country: US (occurrence: US)
  Receive Date: 20190708
  Receipt Date: 20190708
  Transmission Date: 20191004
  Serious: Yes (Other)
  Sender: FDA-Public Use
  Company Number: US-PFIZER INC-2019287897

PATIENT
  Age: 33 Year
  Sex: Female

DRUGS (8)
  1. BACITRACIN. [Concomitant]
     Active Substance: BACITRACIN
     Indication: EYE INFECTION
     Dosage: UNK, 2X/DAY
     Route: 047
  2. FLUTICASONE. [Concomitant]
     Active Substance: FLUTICASONE
     Indication: HYPERSENSITIVITY
     Dosage: UNK, 2X/DAY
  3. TOBRADEX [Concomitant]
     Active Substance: DEXAMETHASONE\TOBRAMYCIN
     Indication: EYE INFECTION
     Dosage: UNK, 1X/DAY
     Route: 047
  4. BACITRACIN. [Concomitant]
     Active Substance: BACITRACIN
     Indication: OCULAR HYPERAEMIA
  5. NEURONTIN [Suspect]
     Active Substance: GABAPENTIN
     Indication: SEIZURE
     Dosage: 600 MG, UNK
  6. NEURONTIN [Suspect]
     Active Substance: GABAPENTIN
     Dosage: 300 MG, UNK
  7. AZELASTINE HCL [Concomitant]
     Active Substance: AZELASTINE HYDROCHLORIDE
     Indication: HYPERSENSITIVITY
     Dosage: UNK, 1X/DAY(AZELASTINE 137MCG)
     Route: 055
  8. TOBRADEX [Concomitant]
     Active Substance: DEXAMETHASONE\TOBRAMYCIN
     Indication: EYE SWELLING

REACTIONS (11)
  - Nail growth abnormal [Unknown]
  - Dry eye [Unknown]
  - Tongue dry [Unknown]
  - Trichiasis [Unknown]
  - Skin discolouration [Unknown]
  - Nasal dryness [Unknown]
  - Madarosis [Unknown]
  - Stevens-Johnson syndrome [Unknown]
  - Therapeutic product effect incomplete [Unknown]
  - Body height decreased [Unknown]
  - Vulvovaginal dryness [Unknown]

NARRATIVE: CASE EVENT DATE: 199310
